FAERS Safety Report 8035918-4 (Version None)
Quarter: 2012Q1

REPORT INFORMATION
  Report Type: 
  Country: None (occurrence: None)
  Receive Date: 20120105
  Receipt Date: 20111223
  Transmission Date: 20120608
  Serious: Yes (Other)
  Sender: FDA-Public Use
  Company Number: 2011SP054833

PATIENT
  Age: 58 Year
  Sex: Male

DRUGS (2)
  1. RIBAVIRIN [Suspect]
     Indication: CHRONIC HEPATITIS
     Dosage: 1000 MG/QD;PO
     Route: 048
     Dates: start: 20110924
  2. PEG-INTRON [Suspect]
     Indication: CHRONIC HEPATITIS
     Dosage: 120 MCG/QW;SC
     Route: 058
     Dates: start: 20110924

REACTIONS (1)
  - HYPOTHYROIDISM [None]
